FAERS Safety Report 13317872 (Version 4)
Quarter: 2017Q3

REPORT INFORMATION
  Report Type: Spontaneous
  Country: US (occurrence: US)
  Receive Date: 20170310
  Receipt Date: 20170926
  Transmission Date: 20171127
  Serious: No
  Sender: FDA-Public Use
  Company Number: US-PFIZER INC-2017097433

PATIENT
  Age: 74 Year
  Sex: Female
  Weight: 71.66 kg

DRUGS (3)
  1. IBRANCE [Suspect]
     Active Substance: PALBOCICLIB
     Indication: BREAST CANCER METASTATIC
     Dosage: 125 MG, CYCLIC (DAY 1-21 Q28 DAYS)
     Route: 048
     Dates: start: 20170218
  2. IBRANCE [Suspect]
     Active Substance: PALBOCICLIB
     Dosage: 125 MG, CYCLIC (DAY 1-21 Q28 DAYS)
     Route: 048
     Dates: start: 20170218
  3. IBRANCE [Suspect]
     Active Substance: PALBOCICLIB
     Dosage: 125 MG, CYCLIC [DAY 1-21 Q 28 DAYS]
     Route: 048
     Dates: start: 20170218, end: 20170906

REACTIONS (14)
  - Diarrhoea [Not Recovered/Not Resolved]
  - Stomatitis [Unknown]
  - Chest discomfort [Unknown]
  - Dry mouth [Unknown]
  - Headache [Not Recovered/Not Resolved]
  - Feeling abnormal [Unknown]
  - Pain [Not Recovered/Not Resolved]
  - Pleural effusion [Unknown]
  - Dyspnoea [Unknown]
  - White blood cell count decreased [Unknown]
  - Cough [Unknown]
  - Crepitations [Unknown]
  - Neoplasm progression [Unknown]
  - Chest pain [Unknown]

NARRATIVE: CASE EVENT DATE: 20170906
